FAERS Safety Report 9797417 (Version 3)
Quarter: 2014Q1

REPORT INFORMATION
  Report Type: Report from Study
  Country: CA (occurrence: CA)
  Receive Date: 20140106
  Receipt Date: 20140114
  Transmission Date: 20141002
  Serious: Yes (Death, Other)
  Sender: FDA-Public Use
  Company Number: PHHY2013CA147353

PATIENT
  Sex: Male

DRUGS (2)
  1. CLOZARIL [Suspect]
     Indication: SCHIZOPHRENIA
     Dosage: 400 MG, HS
     Route: 048
     Dates: start: 20131029, end: 20131209
  2. CLOZARIL [Suspect]
     Dosage: UNK UKN, UNK

REACTIONS (9)
  - Cardiac arrest [Fatal]
  - Loss of consciousness [Fatal]
  - Arrhythmia [Fatal]
  - Overdose [Fatal]
  - Brain injury [Unknown]
  - Ischaemia [Unknown]
  - Gastrointestinal haemorrhage [Unknown]
  - Haematemesis [Unknown]
  - Nausea [Unknown]
